FAERS Safety Report 21574714 (Version 2)
Quarter: 2022Q4

REPORT INFORMATION
  Report Type: Spontaneous
  Country: RS (occurrence: RS)
  Receive Date: 20221109
  Receipt Date: 20221126
  Transmission Date: 20230113
  Serious: Yes (Death, Other)
  Sender: FDA-Public Use
  Company Number: RS-AMGEN-SRBSP2022192087

PATIENT
  Age: 78 Year
  Sex: Male
  Weight: 75 kg

DRUGS (1)
  1. LUMAKRAS [Suspect]
     Active Substance: SOTORASIB
     Indication: K-ras gene mutation
     Dosage: 960 MILLIGRAM, QD
     Route: 048
     Dates: start: 2022, end: 2022

REACTIONS (6)
  - Death [Fatal]
  - Lung adenocarcinoma [Unknown]
  - Dyspnoea [Unknown]
  - Cough [Unknown]
  - Dysphagia [Unknown]
  - Malaise [Unknown]

NARRATIVE: CASE EVENT DATE: 20221017
